FAERS Safety Report 15938761 (Version 1)
Quarter: 2019Q1

REPORT INFORMATION
  Report Type: Report from Study
  Country: AU (occurrence: AU)
  Receive Date: 20190208
  Receipt Date: 20190208
  Transmission Date: 20190417
  Serious: Yes (Other)
  Sender: FDA-Public Use
  Company Number: AU-JNJFOC-20190201972

PATIENT

DRUGS (2)
  1. IBRUTINIB [Suspect]
     Active Substance: IBRUTINIB
     Indication: LYMPHOCYTIC LYMPHOMA
     Route: 048
  2. IBRUTINIB [Suspect]
     Active Substance: IBRUTINIB
     Indication: CHRONIC LYMPHOCYTIC LEUKAEMIA
     Route: 048

REACTIONS (12)
  - Neoplasm malignant [Unknown]
  - Subcutaneous abscess [Unknown]
  - Cellulitis [Unknown]
  - Contusion [Unknown]
  - Haemorrhage [Unknown]
  - Atrial fibrillation [Unknown]
  - Hypertension [Unknown]
  - Arrhythmia [Unknown]
  - Skin lesion [Unknown]
  - Epistaxis [Unknown]
  - Nail disorder [Unknown]
  - Infection [Unknown]
